FAERS Safety Report 22716521 (Version 5)
Quarter: 2023Q4

REPORT INFORMATION
  Report Type: Report from Study
  Country: US (occurrence: US)
  Receive Date: 20230718
  Receipt Date: 20231130
  Transmission Date: 20240110
  Serious: Yes (Other)
  Sender: FDA-Public Use
  Company Number: US-ARGENX-2023-ARGX-US000274

PATIENT

DRUGS (6)
  1. VYVGART [Suspect]
     Active Substance: EFGARTIGIMOD ALFA-FCAB
     Indication: Myasthenia gravis
     Dosage: 1200 MG, 1/WEEK FOR 4 WEEKS
     Route: 048
     Dates: start: 20221212
  2. VYVGART [Suspect]
     Active Substance: EFGARTIGIMOD ALFA-FCAB
     Dosage: 1200 MG, 1/WEEK
     Route: 042
     Dates: start: 20230217
  3. VYVGART [Suspect]
     Active Substance: EFGARTIGIMOD ALFA-FCAB
     Dosage: 60 ML, 1/WEEK FOR 4 WEEKS
     Route: 042
  4. VYVGART [Suspect]
     Active Substance: EFGARTIGIMOD ALFA-FCAB
     Dosage: 10 MG/KG
     Route: 042
     Dates: start: 20230310
  5. VYVGART [Suspect]
     Active Substance: EFGARTIGIMOD ALFA-FCAB
     Dosage: 400 MG/20 ML WEEKLY X 4 WEEKS
     Route: 042
  6. SODIUM CHLORIDE [Concomitant]
     Active Substance: SODIUM CHLORIDE
     Indication: Product used for unknown indication
     Dosage: 100 ML/BAG
     Route: 065

REACTIONS (12)
  - Renal impairment [Unknown]
  - Anxiety [Unknown]
  - Dysarthria [Not Recovered/Not Resolved]
  - Dysphonia [Recovering/Resolving]
  - Choking [Not Recovered/Not Resolved]
  - Dyspnoea exertional [Not Recovered/Not Resolved]
  - Off label use [Unknown]
  - Product dose omission issue [Unknown]
  - Myasthenia gravis [Unknown]
  - Anaemia [Unknown]
  - Agitation [Unknown]
  - Fatigue [Recovering/Resolving]
